FAERS Safety Report 8960471 (Version 1)
Quarter: 2012Q4

REPORT INFORMATION
  Report Type: Spontaneous
  Country: ES (occurrence: None)
  Receive Date: 20121203
  Receipt Date: 20121203
  Transmission Date: 20130627
  Serious: Yes (Other)
  Sender: FDA-Public Use
  Company Number: DSA_61096_2012

PATIENT

DRUGS (5)
  1. FLUOROURACIL (FLUOROURACIL) [Suspect]
     Indication: BREAST CANCER
  2. PACLITAXEL (PACLITAXEL) [Suspect]
     Indication: BREAST CANCER
  3. EPIRUBICIN (EPIRUBICIN) (EPIRUBICIN) [Suspect]
     Indication: BREAST CANCER
  4. CYCLOPHOSPHAMIDE [Suspect]
     Indication: BREAST CANCER
  5. TRASTUZUMAB [Suspect]
     Indication: BREAST CANCER
     Dosage: (DF; Weekly)

REACTIONS (1)
  - Ischaemic stroke [None]
